FAERS Safety Report 8074398-X (Version None)
Quarter: 2012Q1

REPORT INFORMATION
  Report Type: 
  Country: None (occurrence: None)
  Receive Date: 20120126
  Receipt Date: 20120125
  Transmission Date: 20120608
  Serious: Yes (Other)
  Sender: FDA-Public Use
  Company Number: US-GLAXOSMITHKLINE-A0963146A

PATIENT
  Sex: Female

DRUGS (1)
  1. LOVAZA [Suspect]
     Indication: PRODUCT USED FOR UNKNOWN INDICATION
     Route: 065

REACTIONS (2)
  - ALANINE AMINOTRANSFERASE INCREASED [None]
  - LOW DENSITY LIPOPROTEIN INCREASED [None]
